FAERS Safety Report 11795113 (Version 3)
Quarter: 2015Q4

REPORT INFORMATION
  Report Type: Spontaneous
  Country: FR (occurrence: FR)
  Receive Date: 20151202
  Receipt Date: 20151218
  Transmission Date: 20160305
  Serious: Yes (Hospitalization)
  Sender: FDA-Public Use
  Company Number: FR-ABBVIE-15P-056-1510573-00

PATIENT
  Age: 68 Year
  Sex: Female

DRUGS (1)
  1. DUODOPA [Suspect]
     Active Substance: CARBIDOPA\LEVODOPA
     Indication: PRODUCT USED FOR UNKNOWN INDICATION
     Route: 050

REACTIONS (7)
  - Medical device change [Recovered/Resolved]
  - Volvulus of small bowel [Recovered/Resolved with Sequelae]
  - Intestinal obstruction [Recovered/Resolved with Sequelae]
  - Pain [Unknown]
  - Abdominal adhesions [Recovered/Resolved with Sequelae]
  - Vomiting [Unknown]
  - Device issue [Unknown]

NARRATIVE: CASE EVENT DATE: 201504
